FAERS Safety Report 9398335 (Version 1)
Quarter: 2013Q3

REPORT INFORMATION
  Report Type: Spontaneous
  Country: US (occurrence: US)
  Receive Date: 20130712
  Receipt Date: 20130712
  Transmission Date: 20140515
  Serious: Yes (Hospitalization, Other)
  Sender: FDA-Public Use
  Company Number: US-ABBOTT-13P-163-1115499-00

PATIENT
  Age: 46 Year
  Sex: Female
  Weight: 91.71 kg

DRUGS (11)
  1. HUMIRA [Suspect]
     Indication: CROHN^S DISEASE
     Route: 058
     Dates: start: 201005
  2. HUMIRA [Suspect]
     Route: 058
     Dates: end: 20130528
  3. ALLEGRA [Concomitant]
     Indication: SEASONAL ALLERGY
  4. ALLEGRA [Concomitant]
     Indication: ASTHMA
  5. DOCUSATE SODIUM [Concomitant]
     Indication: CROHN^S DISEASE
  6. DULERA [Concomitant]
     Indication: ASTHMA
  7. EXCEDRIN [Concomitant]
     Indication: MIGRAINE
  8. LEXAPRO [Concomitant]
     Indication: ANXIETY
  9. PREDNISONE [Concomitant]
     Indication: PRODUCT USED FOR UNKNOWN INDICATION
  10. MULTIVITAMIN [Concomitant]
     Indication: PRODUCT USED FOR UNKNOWN INDICATION
  11. NASACORT [Concomitant]
     Indication: SEASONAL ALLERGY

REACTIONS (8)
  - Diplopia [Not Recovered/Not Resolved]
  - Vision blurred [Not Recovered/Not Resolved]
  - Paraesthesia [Not Recovered/Not Resolved]
  - Tremor [Unknown]
  - Miller Fisher syndrome [Not Recovered/Not Resolved]
  - Ataxia [Recovering/Resolving]
  - Asthenia [Recovering/Resolving]
  - Neurological decompensation [Recovering/Resolving]
